FAERS Safety Report 4506120-5 (Version None)
Quarter: 2004Q4

REPORT INFORMATION
  Report Type: 
  Country: None (occurrence: None)
  Receive Date: 20041025
  Receipt Date: 20031107
  Transmission Date: 20050328
  Serious: Yes (Other)
  Sender: FDA-Public Use
  Company Number: US-JNJFOC-20030901598

PATIENT
  Age: 66 Year
  Sex: Female

DRUGS (16)
  1. REMICADE [Suspect]
     Indication: RHEUMATOID ARTHRITIS
     Dosage: 282 MG/KG, 1 IN 1 TOTAL, INTRAVENOUS
     Route: 042
     Dates: start: 20030822
  2. METHOTREXATE [Concomitant]
  3. TYLENOL [Concomitant]
  4. BENEDRYL (DIPHENHYDRAMINE HYDROCHLORIDE) [Concomitant]
  5. PREVACID [Concomitant]
  6. ACETYLSALICYLIC ACID SRT [Concomitant]
  7. CLONIDINE [Concomitant]
  8. PREDNISONE [Concomitant]
  9. MONOPRIL [Concomitant]
  10. DILANTIN [Concomitant]
  11. XANAX [Concomitant]
  12. DESERYL (METHYSERGIDE MALEATE) [Concomitant]
  13. FOLIC ACID [Concomitant]
  14. REGLAN [Concomitant]
  15. ZOLOFT [Concomitant]
  16. CEPHALEXIN [Concomitant]

REACTIONS (4)
  - BLOOD PRESSURE INCREASED [None]
  - CHILLS [None]
  - FLUSHING [None]
  - HEADACHE [None]
